FAERS Safety Report 15167123 (Version 1)
Quarter: 2018Q3

REPORT INFORMATION
  Report Type: Spontaneous
  Country: IT (occurrence: IT)
  Receive Date: 20180719
  Receipt Date: 20180719
  Transmission Date: 20181010
  Serious: Yes (Other)
  Sender: FDA-Public Use
  Company Number: PHHY2018IT049779

PATIENT
  Age: 46 Year
  Sex: Male

DRUGS (8)
  1. LINEZOLID. [Suspect]
     Active Substance: LINEZOLID
     Indication: MYCOBACTERIUM ABSCESSUS INFECTION
     Dosage: 600 MG, BID
     Route: 065
  2. AMIKACIN. [Concomitant]
     Active Substance: AMIKACIN
     Indication: MYCOBACTERIUM ABSCESSUS INFECTION
     Dosage: 10 MG/KG, QD
     Route: 065
  3. CLARITHROMYCIN. [Concomitant]
     Active Substance: CLARITHROMYCIN
     Indication: MYCOBACTERIUM ABSCESSUS INFECTION
     Dosage: 500 MG, BID
     Route: 065
  4. CEFOXITIN [Suspect]
     Active Substance: CEFOXITIN SODIUM
     Indication: MENINGITIS
     Dosage: 3 G FOUR TIMES DAILY
     Route: 065
  5. IMIPENEM AND CILASTATIN [Suspect]
     Active Substance: CILASTATIN SODIUM\IMIPENEM
     Indication: MENINGITIS
  6. AMIKACIN. [Concomitant]
     Active Substance: AMIKACIN
     Indication: MYCOBACTERIUM ABSCESSUS INFECTION
  7. AMIKACIN. [Concomitant]
     Active Substance: AMIKACIN
     Indication: MENINGITIS
  8. IMIPENEM AND CILASTATIN [Suspect]
     Active Substance: CILASTATIN SODIUM\IMIPENEM
     Indication: MYCOBACTERIUM ABSCESSUS INFECTION
     Dosage: 500 MG, QID
     Route: 065

REACTIONS (4)
  - Drug intolerance [Recovering/Resolving]
  - Thrombocytopenia [Recovering/Resolving]
  - Product use in unapproved indication [Unknown]
  - Rash maculo-papular [Recovering/Resolving]
